FAERS Safety Report 9900651 (Version 2)
Quarter: 2014Q1

REPORT INFORMATION
  Report Type: Report from Study
  Country: NL (occurrence: NL)
  Receive Date: 20140217
  Receipt Date: 20140219
  Transmission Date: 20141002
  Serious: Yes (Death, Hospitalization)
  Sender: FDA-Public Use
  Company Number: NL-ROCHE-1349286

PATIENT
  Age: 50 Year
  Sex: Male
  Weight: 119 kg

DRUGS (2)
  1. BEVACIZUMAB [Suspect]
     Indication: BRAIN NEOPLASM MALIGNANT
     Dosage: DATE OF LAST DOSE PRIOR TO EVENT 24/JAN/2014
     Route: 042
     Dates: start: 20130111
  2. LOMUSTINE [Suspect]
     Indication: BRAIN NEOPLASM MALIGNANT
     Dosage: DATE OF LAST DOSE PRIOR TO EVENT 01/NOV/2013
     Route: 048
     Dates: start: 20130111

REACTIONS (1)
  - Fall [Fatal]
